FAERS Safety Report 6379821-4 (Version None)
Quarter: 2009Q3

REPORT INFORMATION
  Report Type: 
  Country: None (occurrence: None)
  Receive Date: 20090916
  Receipt Date: 20090909
  Transmission Date: 20100115
  Serious: Yes (Life-Threatening, Other)
  Sender: FDA-Public Use
  Company Number: THYM-1001105

PATIENT
  Age: 15 Year
  Sex: Male
  Weight: 51.5 kg

DRUGS (1)
  1. THYMOGLOBULIN       (ANTI-THYMOCYTE GLOBULIN (RABBIT)) POWDER  SOLUTIO [Suspect]
     Indication: PROPHYLAXIS AGAINST TRANSPLANT REJECTION
     Dosage: INTRAVENOUS
     Route: 042
     Dates: start: 20071031, end: 20071031

REACTIONS (2)
  - ANAPHYLACTIC REACTION [None]
  - RENAL GRAFT LOSS [None]
